FAERS Safety Report 24212598 (Version 1)
Quarter: 2024Q3

REPORT INFORMATION
  Report Type: Report from Study
  Country: US (occurrence: None)
  Receive Date: 20240815
  Receipt Date: 20240815
  Transmission Date: 20241017
  Serious: Yes (Other)
  Sender: ASTRAZENECA
  Company Number: 2024A182025

PATIENT
  Age: 692 Month
  Sex: Female

DRUGS (3)
  1. FASENRA [Suspect]
     Active Substance: BENRALIZUMAB
     Indication: Asthma
     Dosage: 30MG/ML EVERY EIGHT WEEKS
     Route: 058
     Dates: start: 20210916
  2. BUDESONIDE\FORMOTEROL [Suspect]
     Active Substance: BUDESONIDE\FORMOTEROL
     Dosage: 160-4.5 UNKNOWN
     Route: 055
  3. BUDESONIDE [Suspect]
     Active Substance: BUDESONIDE
     Dosage: 0.5MG/2
     Route: 055

REACTIONS (2)
  - Cerebrovascular accident [Not Recovered/Not Resolved]
  - Speech disorder [Not Recovered/Not Resolved]

NARRATIVE: CASE EVENT DATE: 20240701
